FAERS Safety Report 5047561-X (Version None)
Quarter: 2006Q3

REPORT INFORMATION
  Report Type: 
  Country: None (occurrence: None)
  Receive Date: 20060711
  Receipt Date: 20021125
  Transmission Date: 20061208
  Serious: Yes (Other)
  Sender: FDA-Public Use
  Company Number: FI-AMGEN-03010021

PATIENT
  Age: 31 Year
  Sex: Female

DRUGS (3)
  1. ENBREL [Suspect]
     Indication: JUVENILE ARTHRITIS
     Dates: start: 19990701, end: 20000801
  2. ENBREL [Suspect]
     Indication: POLYARTHRITIS
  3. METHOTREXATE [Concomitant]

REACTIONS (1)
  - IRIDOCYCLITIS [None]
